FAERS Safety Report 4625860-0 (Version None)
Quarter: 2005Q2

REPORT INFORMATION
  Report Type: 
  Country: None (occurrence: None)
  Receive Date: 20050404
  Receipt Date: 20050325
  Transmission Date: 20051028
  Serious: Yes (Hospitalization)
  Sender: FDA-Public Use
  Company Number: 200512765GDDC

PATIENT
  Age: 67 Year
  Sex: Male

DRUGS (5)
  1. NATRILIX - SLOW RELEASE [Suspect]
     Indication: HYPERTENSION
     Route: 048
     Dates: end: 20050114
  2. AMLODIPINE [Concomitant]
     Dates: end: 20050114
  3. ATENOLOL [Concomitant]
     Dates: end: 20050120
  4. ALLOPURINOL [Concomitant]
  5. DICLOFENAC [Concomitant]
     Dates: end: 20050114

REACTIONS (5)
  - BLOOD SODIUM DECREASED [None]
  - CENTRAL PONTINE MYELINOLYSIS [None]
  - CONFUSIONAL STATE [None]
  - METABOLIC ENCEPHALOPATHY [None]
  - WERNICKE'S ENCEPHALOPATHY [None]
